FAERS Safety Report 6706328-4 (Version None)
Quarter: 2010Q2

REPORT INFORMATION
  Report Type: 
  Country: None (occurrence: None)
  Receive Date: 20100503
  Receipt Date: 20100423
  Transmission Date: 20101027
  Serious: Yes (Hospitalization, Other)
  Sender: FDA-Public Use
  Company Number: CA-ELI_LILLY_AND_COMPANY-US201004006440

PATIENT
  Sex: Male
  Weight: 90.703 kg

DRUGS (8)
  1. BYETTA [Suspect]
     Indication: TYPE 2 DIABETES MELLITUS
     Dosage: 5 UG, 2/D
     Route: 058
     Dates: start: 20070901, end: 20070101
  2. BYETTA [Suspect]
     Dosage: 10 UG, 2/D
     Route: 058
     Dates: start: 20070101, end: 20090901
  3. ATIVAN [Concomitant]
     Indication: INSOMNIA
     Dosage: 1 MG, EACH EVENING
  4. NEXIUM [Concomitant]
     Dosage: 140 MG, DAILY (1/D)
  5. AVAPRO [Concomitant]
     Indication: BLOOD PRESSURE
     Dosage: 300 MG, UNK
     Dates: end: 20100201
  6. GLUCOPHAGE [Concomitant]
     Indication: DIABETES MELLITUS
     Dates: end: 20090901
  7. GLYBURIDE [Concomitant]
     Indication: DIABETES MELLITUS
     Dates: end: 20090901
  8. ACTOS [Concomitant]
     Indication: DIABETES MELLITUS
     Dates: end: 20090901

REACTIONS (7)
  - ABDOMINAL PAIN [None]
  - ERUCTATION [None]
  - GALLBLADDER DISORDER [None]
  - GASTROOESOPHAGEAL REFLUX DISEASE [None]
  - METASTASES TO LIVER [None]
  - NEOPLASM [None]
  - WEIGHT DECREASED [None]
